FAERS Safety Report 10246596 (Version 1)
Quarter: 2014Q2

REPORT INFORMATION
  Report Type: Report from Study
  Country: BR (occurrence: BR)
  Receive Date: 20140619
  Receipt Date: 20140619
  Transmission Date: 20141212
  Serious: Yes (Other)
  Sender: FDA-Public Use
  Company Number: BR-ABBVIE-14P-020-1247944-00

PATIENT
  Age: 45 Year
  Sex: Male
  Weight: 83 kg

DRUGS (11)
  1. HUMIRA [Suspect]
     Indication: CROHN^S DISEASE
     Dosage: UNSPECIFIED LOADING DOSE
     Route: 058
     Dates: start: 20110524, end: 20110524
  2. HUMIRA [Suspect]
     Route: 058
  3. MUZINOL [Concomitant]
     Indication: DIARRHOEA
     Route: 048
     Dates: start: 20140310
  4. MUZINOL [Concomitant]
     Indication: PROPHYLAXIS
  5. CALCIUM [Concomitant]
     Indication: MINERAL SUPPLEMENTATION
     Route: 048
     Dates: start: 20090610
  6. MAGNESIUM [Concomitant]
     Indication: SUPPLEMENTATION THERAPY
     Route: 048
     Dates: start: 20130610
  7. OMEGA 3 [Concomitant]
     Indication: HYPERCHOLESTEROLAEMIA
     Route: 048
     Dates: start: 20140210
  8. VITAMIN D NOS [Concomitant]
     Indication: OSTEOPOROSIS
     Route: 048
     Dates: start: 20130310
  9. ACYCLOVIR [Concomitant]
     Indication: HERPES VIRUS INFECTION
     Route: 048
     Dates: start: 20100610
  10. CONSTRAN [Concomitant]
     Indication: PROPHYLAXIS
     Dates: start: 20130815, end: 20140215
  11. CONSTRAN [Concomitant]
     Indication: DIARRHOEA

REACTIONS (5)
  - Intestinal obstruction [Recovered/Resolved]
  - Gastrointestinal carcinoma [Recovered/Resolved]
  - Vitamin D deficiency [Unknown]
  - Cholecystectomy [Unknown]
  - Urinary tract infection [Recovered/Resolved]
